FAERS Safety Report 20092960 (Version 2)
Quarter: 2021Q4

REPORT INFORMATION
  Report Type: Report from Study
  Country: EG (occurrence: EG)
  Receive Date: 20211120
  Receipt Date: 20211207
  Transmission Date: 20220303
  Serious: Yes (Hospitalization, Other)
  Sender: FDA-Public Use
  Company Number: EG-NOVARTISPH-NVSC2021EG260590

PATIENT
  Age: 73 Year
  Sex: Male

DRUGS (21)
  1. ENTRESTO [Suspect]
     Active Substance: SACUBITRIL\VALSARTAN
     Indication: Cardiac failure
     Dosage: 50 MG
     Route: 048
     Dates: start: 20191101
  2. ENTRESTO [Suspect]
     Active Substance: SACUBITRIL\VALSARTAN
     Dosage: 150 MG, QD (50MG ONE TABLET IN THE MORNING AND ENTRESTO 100MG ONE TABLET AT NIGHT DAILY)
     Route: 065
     Dates: start: 202001
  3. ENTRESTO [Suspect]
     Active Substance: SACUBITRIL\VALSARTAN
     Dosage: 50 MG, BID
     Route: 048
     Dates: start: 20210719, end: 20211109
  4. ENTRESTO [Suspect]
     Active Substance: SACUBITRIL\VALSARTAN
     Dosage: 100 MG, ONE TABLET AT NIGHT DAILY
     Route: 048
     Dates: start: 20211109
  5. ENTRESTO [Suspect]
     Active Substance: SACUBITRIL\VALSARTAN
     Dosage: 150 MG, QD (50MG ONE TABLET IN THE MORNING AND ENTRESTO 100MG ONE TABLET AT NIGHT DAILY)
     Route: 065
     Dates: start: 20211111
  6. WARFARIN SODIUM [Concomitant]
     Active Substance: WARFARIN SODIUM
     Indication: Product used for unknown indication
     Dosage: UNK
     Route: 065
     Dates: start: 20211111
  7. LIBRAX [Concomitant]
     Active Substance: CHLORDIAZEPOXIDE HYDROCHLORIDE\CLIDINIUM BROMIDE
     Indication: Constipation
     Dosage: 1 DOSAGE FORM, BID
     Route: 048
     Dates: end: 20211105
  8. LIBRAX [Concomitant]
     Active Substance: CHLORDIAZEPOXIDE HYDROCHLORIDE\CLIDINIUM BROMIDE
     Indication: Gastrooesophageal reflux disease
  9. LIBRAX [Concomitant]
     Active Substance: CHLORDIAZEPOXIDE HYDROCHLORIDE\CLIDINIUM BROMIDE
     Indication: Gastrointestinal disorder
  10. RABEPRAZOLE SODIUM [Concomitant]
     Active Substance: RABEPRAZOLE SODIUM
     Indication: Gastrointestinal disorder
     Dosage: 1 DOSAGE FORM, BID
     Route: 048
     Dates: end: 20211105
  11. RABEPRAZOLE SODIUM [Concomitant]
     Active Substance: RABEPRAZOLE SODIUM
     Indication: Gastrooesophageal reflux disease
  12. RABEPRAZOLE SODIUM [Concomitant]
     Active Substance: RABEPRAZOLE SODIUM
     Indication: Constipation
  13. EVACULAX [Concomitant]
     Indication: Constipation
     Dosage: 2 DOSAGE FORM, QD
     Route: 048
  14. EVACULAX [Concomitant]
     Indication: Gastrooesophageal reflux disease
  15. EVACULAX [Concomitant]
     Indication: Gastrointestinal disorder
  16. CONTROLOC [Concomitant]
     Active Substance: PANTOPRAZOLE SODIUM
     Indication: Constipation
     Dosage: UNK
     Route: 048
  17. CONTROLOC [Concomitant]
     Active Substance: PANTOPRAZOLE SODIUM
     Indication: Gastrooesophageal reflux disease
  18. CONTROLOC [Concomitant]
     Active Substance: PANTOPRAZOLE SODIUM
     Indication: Gastrointestinal disorder
  19. GAST-REG [Concomitant]
     Indication: Constipation
     Dosage: 1 DOSAGE FORM, TID
     Route: 048
     Dates: end: 20211105
  20. GAST-REG [Concomitant]
     Indication: Gastrooesophageal reflux disease
  21. GAST-REG [Concomitant]
     Indication: Gastrointestinal disorder

REACTIONS (14)
  - Pulmonary oedema [Recovered/Resolved]
  - Dyspnoea [Recovered/Resolved]
  - Viral infection [Recovered/Resolved]
  - Pneumonitis [Recovered/Resolved]
  - Fatigue [Recovered/Resolved]
  - Oxygen saturation decreased [Recovered/Resolved]
  - Ejection fraction decreased [Recovering/Resolving]
  - Dementia with Lewy bodies [Not Recovered/Not Resolved]
  - Memory impairment [Not Recovered/Not Resolved]
  - Peripheral swelling [Recovered/Resolved]
  - Heart rate decreased [Recovered/Resolved]
  - Blood pressure decreased [Recovered/Resolved]
  - Movement disorder [Not Recovered/Not Resolved]
  - Inappropriate schedule of product administration [Recovered/Resolved]

NARRATIVE: CASE EVENT DATE: 20210101
